FAERS Safety Report 11102324 (Version 1)
Quarter: 2015Q2

REPORT INFORMATION
  Report Type: Spontaneous
  Country: JP (occurrence: None)
  Receive Date: 20150507
  Receipt Date: 20150507
  Transmission Date: 20150821
  Serious: Yes (Other)
  Sender: FDA-Public Use
  Company Number: 2015RN000018

PATIENT
  Age: 92 Year
  Sex: Female

DRUGS (12)
  1. ZOVIRAX [Suspect]
     Active Substance: ACYCLOVIR
     Indication: RASH
     Route: 048
     Dates: start: 20150301, end: 20150304
  2. REBAMIPIDE (REBAMIPIDE) (TABLET) [Concomitant]
     Active Substance: REBAMIPIDE
  3. ADALAT L (NIFEDIPINE) [Concomitant]
  4. LOXOPROFEN (LOXOPROFEN) [Concomitant]
     Active Substance: LOXOPROFEN
  5. MEVALOTIN (PRAVASTATIN SODIUM) [Concomitant]
     Active Substance: PRAVASTATIN SODIUM
  6. VALACYCLOVIR [Suspect]
     Active Substance: VALACYCLOVIR HYDROCHLORIDE
     Indication: HERPES ZOSTER
     Route: 048
     Dates: start: 20150303, end: 20150303
  7. ZOVIRAX [Suspect]
     Active Substance: ACYCLOVIR
     Route: 048
     Dates: start: 20150301, end: 20150304
  8. AMARYL [Concomitant]
     Active Substance: GLIMEPIRIDE
  9. CARDENALIN (DOXAZOSIN MESILATE) [Concomitant]
  10. MEDET (METFORMIN HYDROCHLORIDE) [Concomitant]
  11. JANUVIA [Concomitant]
     Active Substance: SITAGLIPTIN PHOSPHATE
  12. PERSANTIN (DIPYRIDAMOLE) [Concomitant]

REACTIONS (9)
  - Psychomotor hyperactivity [None]
  - Blister [None]
  - Dehydration [None]
  - Decreased appetite [None]
  - Rash [None]
  - Renal failure [None]
  - Hallucination, visual [None]
  - Vomiting [None]
  - Herpes zoster [None]

NARRATIVE: CASE EVENT DATE: 20150302
